FAERS Safety Report 12746228 (Version 1)
Quarter: 2016Q3

REPORT INFORMATION
  Report Type: Report from Study
  Country: US (occurrence: US)
  Receive Date: 20160915
  Receipt Date: 20160915
  Transmission Date: 20161109
  Serious: Yes (Death, Other)
  Sender: FDA-Public Use
  Company Number: US-GILEAD-2016-0233642

PATIENT
  Age: 82 Year
  Sex: Male

DRUGS (13)
  1. AMBRISENTAN [Suspect]
     Active Substance: AMBRISENTAN
     Indication: PULMONARY HYPERTENSION
     Dosage: 5 MG, QD
     Route: 065
     Dates: start: 20120416, end: 20160731
  2. ALLOPURINOL. [Concomitant]
     Active Substance: ALLOPURINOL
  3. POTASSIUM [Concomitant]
     Active Substance: POTASSIUM
  4. OMEPRAZOLE. [Concomitant]
     Active Substance: OMEPRAZOLE
  5. FUROSEMIDE. [Concomitant]
     Active Substance: FUROSEMIDE
  6. METOLAZONE. [Concomitant]
     Active Substance: METOLAZONE
  7. LUMIGAN [Concomitant]
     Active Substance: BIMATOPROST
  8. OXYCODONE [Concomitant]
     Active Substance: OXYCODONE
  9. INSULIN [Concomitant]
     Active Substance: INSULIN NOS
  10. SIMVASTATIN. [Concomitant]
     Active Substance: SIMVASTATIN
  11. QUINIDINE [Concomitant]
     Active Substance: QUINIDINE
  12. AMLODIPINE [Concomitant]
     Active Substance: AMLODIPINE BESYLATE
  13. SENSIPAR [Concomitant]
     Active Substance: CINACALCET HYDROCHLORIDE

REACTIONS (1)
  - Death [Fatal]

NARRATIVE: CASE EVENT DATE: 20160731
